FAERS Safety Report 17658371 (Version 1)
Quarter: 2020Q2

REPORT INFORMATION
  Report Type: Spontaneous
  Country: ES (occurrence: ES)
  Receive Date: 20200412
  Receipt Date: 20200412
  Transmission Date: 20200713
  Serious: Yes (Life-Threatening, Other)
  Sender: FDA-Public Use
  Company Number: ES-AUROBINDO-AUR-APL-2020-017950

PATIENT
  Age: 72 Year
  Sex: Male

DRUGS (3)
  1. LINEZOLID. [Suspect]
     Active Substance: LINEZOLID
     Indication: BILIARY TRACT INFECTION
     Dosage: 600 MILLIGRAM, TWO TIMES A DAY
     Route: 042
     Dates: start: 20190926, end: 20191001
  2. MEROPENEM. [Suspect]
     Active Substance: MEROPENEM
     Indication: BILIARY TRACT INFECTION
     Dosage: 1 GRAM, 3 TIMES A DAY
     Route: 042
     Dates: start: 20190926, end: 20191007
  3. AMPICILLIN [Suspect]
     Active Substance: AMPICILLIN
     Indication: BILIARY TRACT INFECTION
     Dosage: 2 GRAM, EVERY FOUR HOUR
     Route: 042
     Dates: start: 20190926, end: 20191001

REACTIONS (1)
  - Pancytopenia [Recovering/Resolving]

NARRATIVE: CASE EVENT DATE: 20190929
